FAERS Safety Report 5669113-0 (Version None)
Quarter: 2008Q1

REPORT INFORMATION
  Report Type: 
  Country: None (occurrence: None)
  Receive Date: 20080317
  Receipt Date: 20080303
  Transmission Date: 20080703
  Serious: Yes (Hospitalization)
  Sender: FDA-Public Use
  Company Number: ES-AMGEN-UK265792

PATIENT
  Age: 46 Year
  Sex: Female

DRUGS (5)
  1. NEULASTA [Suspect]
     Indication: CHEMOTHERAPY
     Dates: start: 20080125
  2. EUTIROX [Concomitant]
  3. ADRIAMYCIN [Concomitant]
     Dates: start: 20080124
  4. CYTOXAN [Concomitant]
     Dates: start: 20080124
  5. TAXOTERE [Concomitant]
     Dates: start: 20080124

REACTIONS (3)
  - ANAEMIA [None]
  - FEBRILE NEUTROPENIA [None]
  - THROMBOCYTOPENIA [None]
